FAERS Safety Report 6922173-9 (Version None)
Quarter: 2010Q3

REPORT INFORMATION
  Report Type: 
  Country: None (occurrence: None)
  Receive Date: 20100812
  Receipt Date: 20100802
  Transmission Date: 20110219
  Serious: Yes (Death)
  Sender: FDA-Public Use
  Company Number: RU-GENENTECH-305069

PATIENT
  Age: 12 Year
  Sex: Female

DRUGS (3)
  1. MABTHERA [Suspect]
     Indication: LUPUS NEPHRITIS
     Dosage: 500 MG, UNK
     Route: 042
     Dates: start: 20100524
  2. MABTHERA [Suspect]
     Dosage: 500 MG, UNK
     Route: 042
     Dates: start: 20100608
  3. CYCLOPHOSPHAMIDE [Concomitant]
     Indication: PRODUCT USED FOR UNKNOWN INDICATION
     Dosage: UNK

REACTIONS (1)
  - EMBOLISM ARTERIAL [None]
